FAERS Safety Report 26170627 (Version 1)
Quarter: 2025Q4

REPORT INFORMATION
  Report Type: Spontaneous
  Country: US (occurrence: US)
  Receive Date: 20251217
  Receipt Date: 20251217
  Transmission Date: 20260117
  Serious: No
  Sender: ALVOGEN
  Company Number: US-ALVOGEN-2025098117

PATIENT

DRUGS (1)
  1. FENTANYL [Suspect]
     Active Substance: FENTANYL
     Indication: Analgesic therapy
     Dosage: 100 MCG PATCHES

REACTIONS (3)
  - Gastrointestinal motility disorder [Unknown]
  - Therapeutic response unexpected [Unknown]
  - Product availability issue [Unknown]
